FAERS Safety Report 20714342 (Version 1)
Quarter: 2022Q2

REPORT INFORMATION
  Report Type: Spontaneous
  Country: US (occurrence: None)
  Receive Date: 20220415
  Receipt Date: 20220415
  Transmission Date: 20220721
  Serious: Yes (Other)
  Sender: FDA-Public Use
  Company Number: US-ROCHE-3069388

PATIENT
  Sex: Male

DRUGS (10)
  1. AVASTIN [Suspect]
     Active Substance: BEVACIZUMAB
     Indication: Colorectal cancer metastatic
     Dosage: AVASTIN WITH FOLFOX ;ONGOING: NO
     Route: 065
     Dates: start: 202101
  2. AVASTIN [Suspect]
     Active Substance: BEVACIZUMAB
     Dosage: AVASTIN WITH FOLFIRI ;ONGOING: NO
     Route: 065
     Dates: start: 202108, end: 202112
  3. LEUCOVORIN [Concomitant]
     Active Substance: LEUCOVORIN
     Indication: Colorectal cancer metastatic
     Dosage: NO
     Route: 065
     Dates: start: 202101
  4. LEUCOVORIN [Concomitant]
     Active Substance: LEUCOVORIN
     Route: 065
     Dates: start: 202108, end: 202112
  5. INJECTAFER [Concomitant]
     Active Substance: FERRIC CARBOXYMALTOSE
     Indication: Anaemia
     Dosage: INJECTAFER X 2 ;ONGOING: NO
     Route: 065
     Dates: start: 202101
  6. FLUOROURACIL [Concomitant]
     Active Substance: FLUOROURACIL
     Indication: Colorectal cancer metastatic
     Dosage: UNKNOWN
     Route: 065
     Dates: start: 202101
  7. FLUOROURACIL [Concomitant]
     Active Substance: FLUOROURACIL
     Dosage: FOLFIRI AND AVASTIN ;ONGOING: NO
     Route: 065
     Dates: start: 202108, end: 202112
  8. OXALIPLATIN [Concomitant]
     Active Substance: OXALIPLATIN
     Indication: Colorectal cancer metastatic
     Dosage: NO
     Route: 065
     Dates: start: 202101, end: 202107
  9. IRINOTECAN [Concomitant]
     Active Substance: IRINOTECAN
     Indication: Colorectal cancer metastatic
     Dosage: FOLFIRI WITH AVASTIN ;ONGOING: NO
     Route: 065
     Dates: start: 202108, end: 202112
  10. IRINOTECAN [Concomitant]
     Active Substance: IRINOTECAN
     Dosage: FOLFIRI WITH PANITUMUMAB ;ONGOING: UNKNOWN
     Route: 065
     Dates: start: 202201

REACTIONS (8)
  - Portal hypertension [Unknown]
  - Pancytopenia [Unknown]
  - Carcinoembryonic antigen increased [Unknown]
  - Metastases to liver [Unknown]
  - Pulmonary mass [Unknown]
  - Adrenal mass [Unknown]
  - Hepatic enzyme increased [Recovered/Resolved]
  - Dermatitis acneiform [Unknown]

NARRATIVE: CASE EVENT DATE: 20210701
